FAERS Safety Report 20125472 (Version 1)
Quarter: 2021Q4

REPORT INFORMATION
  Report Type: Spontaneous
  Country: US (occurrence: US)
  Receive Date: 20211129
  Receipt Date: 20211129
  Transmission Date: 20220303
  Serious: No
  Sender: FDA-Public Use
  Company Number: US-PFIZER INC-2021472796

PATIENT
  Age: 49 Year
  Sex: Female
  Weight: 56.689 kg

DRUGS (1)
  1. GABAPENTIN [Suspect]
     Active Substance: GABAPENTIN
     Indication: Periodic limb movement disorder
     Dosage: 400 MG

REACTIONS (3)
  - Off label use [Unknown]
  - Off label use [Unknown]
  - Back pain [Unknown]
